FAERS Safety Report 11500856 (Version 1)
Quarter: 2015Q3

REPORT INFORMATION
  Report Type: Spontaneous
  Country: IT (occurrence: IT)
  Receive Date: 20150914
  Receipt Date: 20150914
  Transmission Date: 20151125
  Serious: Yes (Other)
  Sender: FDA-Public Use
  Company Number: IT-TEVA-592897ACC

PATIENT
  Age: 53 Year
  Sex: Male
  Weight: 54 kg

DRUGS (7)
  1. RIBAVIRINA TEVA - TEVA B.V. [Suspect]
     Active Substance: RIBAVIRIN
     Indication: CHRONIC HEPATITIS C
     Dosage: 600 MILLIGRAM DAILY; 600 MG DAILY
     Route: 048
     Dates: start: 20150617, end: 20150826
  2. REYATAZ [Interacting]
     Active Substance: ATAZANAVIR SULFATE
     Indication: HIV INFECTION
     Dosage: 300 MILLIGRAM DAILY; 300 MG DAILY
     Route: 048
     Dates: start: 20070614, end: 20150831
  3. DAKLINZA - 30 MG COMPRESSA RIVESTITA CON FILM [Concomitant]
     Indication: CHRONIC HEPATITIS C
     Dosage: 30 MG
     Route: 048
     Dates: start: 20150617, end: 20150831
  4. TRUVADA - COMPRESSE RIVESTITE CON FILM 200 MG/245 MG [Concomitant]
     Indication: HIV INFECTION
     Dosage: 1 DF
     Route: 048
     Dates: start: 20081031, end: 20150831
  5. SOVALDI [Concomitant]
     Active Substance: SOFOSBUVIR
     Indication: CHRONIC HEPATITIS C
     Dosage: 1 DF
     Route: 048
     Dates: start: 20150617, end: 20150831
  6. NORVIR [Interacting]
     Active Substance: RITONAVIR
     Indication: HIV INFECTION
     Dosage: 100 MILLIGRAM DAILY; 100 MG DAILY
     Route: 048
     Dates: start: 20061010, end: 20150831
  7. DAKLINZA - 30 MG COMPRESSA RIVESTITA CON FILM [Concomitant]
     Dosage: 60 MILLIGRAM DAILY; 60 MG
     Route: 048
     Dates: start: 20150617, end: 20150831

REACTIONS (3)
  - Hyperbilirubinaemia [Unknown]
  - Drug interaction [Unknown]
  - Reticulocyte count increased [None]

NARRATIVE: CASE EVENT DATE: 20150729
